FAERS Safety Report 19440660 (Version 1)
Quarter: 2021Q2

REPORT INFORMATION
  Report Type: Spontaneous
  Country: US (occurrence: US)
  Receive Date: 20210621
  Receipt Date: 20210621
  Transmission Date: 20210717
  Serious: No
  Sender: FDA-Public Use
  Company Number: US-STRIDES ARCOLAB LIMITED-2020SP016568

PATIENT
  Age: 66 Year

DRUGS (2)
  1. HYDROCORTISONE TABLET 20 MG [Suspect]
     Active Substance: HYDROCORTISONE
     Dosage: 10 MILLIGRAM, EVENING
     Route: 065
     Dates: start: 1993
  2. HYDROCORTISONE TABLET 20 MG [Suspect]
     Active Substance: HYDROCORTISONE
     Indication: HYPOPITUITARISM
     Dosage: 20 MILLIGRAM, EVERY MORNING
     Route: 065
     Dates: start: 1993

REACTIONS (1)
  - Off label use [Unknown]

NARRATIVE: CASE EVENT DATE: 1993
